FAERS Safety Report 8017069-8 (Version None)
Quarter: 2012Q1

REPORT INFORMATION
  Report Type: 
  Country: None (occurrence: None)
  Receive Date: 20120102
  Receipt Date: 20111230
  Transmission Date: 20120608
  Serious: Yes (Life-Threatening, Hospitalization)
  Sender: FDA-Public Use
  Company Number: PHHY2011DE107511

PATIENT
  Sex: Male
  Weight: 71 kg

DRUGS (4)
  1. DEKRISTOL [Concomitant]
     Dosage: UNK UKN, UNK
     Route: 048
  2. STEROIDS [Concomitant]
     Indication: PROPHYLAXIS AGAINST TRANSPLANT REJECTION
     Dosage: UNK UKN, UNK
     Route: 048
  3. MYFORTIC [Suspect]
     Indication: PROPHYLAXIS AGAINST TRANSPLANT REJECTION
     Dosage: 360 MG TWICE DAILY
     Route: 048
     Dates: start: 20110401, end: 20111201
  4. ANGIOTENSIN II ANTAGONISTS [Concomitant]
     Dosage: UNK UKN, UNK
     Route: 048

REACTIONS (7)
  - ABDOMINAL DISCOMFORT [None]
  - DIARRHOEA [None]
  - SYNCOPE [None]
  - VASCULITIS CEREBRAL [None]
  - CEREBRAL DISORDER [None]
  - ABDOMINAL DISTENSION [None]
  - REGURGITATION [None]
